FAERS Safety Report 6379909-8 (Version None)
Quarter: 2009Q3

REPORT INFORMATION
  Report Type: 
  Country: None (occurrence: None)
  Receive Date: 20090928
  Receipt Date: 20090923
  Transmission Date: 20100115
  Serious: Yes (Death, Hospitalization)
  Sender: FDA-Public Use
  Company Number: PHHY2009CN40963

PATIENT
  Age: 80 Year
  Sex: Male

DRUGS (1)
  1. ZOMETA [Suspect]
     Indication: BONE PAIN
     Dosage: 4 MG, UNK
     Dates: start: 20051101

REACTIONS (4)
  - CARDIAC FAILURE [None]
  - OLIGURIA [None]
  - RENAL FAILURE [None]
  - RESPIRATORY FAILURE [None]
